FAERS Safety Report 8482551-6 (Version None)
Quarter: 2012Q3

REPORT INFORMATION
  Report Type: 
  Country: None (occurrence: None)
  Receive Date: 20120702
  Receipt Date: 20120621
  Transmission Date: 20120928
  Serious: Yes (Hospitalization, Other)
  Sender: FDA-Public Use
  Company Number: US-MYLANLABS-2009AC000201

PATIENT
  Age: 71 Year
  Sex: Female
  Weight: 77.11 kg

DRUGS (38)
  1. DIGOXIN [Suspect]
     Indication: ATRIAL FIBRILLATION
     Route: 048
     Dates: start: 19960516, end: 20080314
  2. HYDROCHLOROTHIAZIDE [Concomitant]
  3. ZOCOR [Concomitant]
  4. NORVASC [Concomitant]
  5. KLOR-CON [Concomitant]
  6. IBUPROFEN [Concomitant]
  7. TYLENOL W/ CODEINE [Concomitant]
  8. LASIX [Concomitant]
  9. LEVOXYL [Concomitant]
  10. AMIBID DM [Concomitant]
  11. GLUCOSAMINE [Concomitant]
  12. LANTUS [Concomitant]
  13. ARICEPT [Concomitant]
  14. HUMALOG [Concomitant]
  15. ASPIRIN [Concomitant]
  16. FLAGYL [Concomitant]
  17. LESCOL [Concomitant]
  18. ACCOLATE [Concomitant]
  19. BIAXIN [Concomitant]
  20. CEFUROXIME [Concomitant]
  21. HUMULIN R [Concomitant]
  22. COMPAZINE [Concomitant]
  23. LEVAQUIN [Concomitant]
  24. CELEXA [Concomitant]
  25. ALBUTEROL [Concomitant]
  26. VERAPAMIL [Concomitant]
  27. ACTOS [Concomitant]
  28. METFORMIN HCL [Concomitant]
  29. AVELOX [Concomitant]
  30. ENALAPRIL MALEATE [Concomitant]
  31. NABUMETONE [Concomitant]
  32. SIMVASTATIN [Concomitant]
  33. NORVASC [Concomitant]
  34. ATENOLOL [Concomitant]
  35. MAXZIDE [Concomitant]
  36. LEVOTHYROXINE SODIUM [Concomitant]
  37. LISINOPRIL [Concomitant]
  38. POTASSIUM [Concomitant]

REACTIONS (107)
  - INJURY [None]
  - EMOTIONAL DISTRESS [None]
  - OEDEMA PERIPHERAL [None]
  - CAROTID BRUIT [None]
  - CONFUSIONAL STATE [None]
  - RHINITIS ALLERGIC [None]
  - DERMATITIS CONTACT [None]
  - COMPUTERISED TOMOGRAM ABNORMAL [None]
  - EXERCISE TOLERANCE DECREASED [None]
  - CARDIOVASCULAR DISORDER [None]
  - ONYCHOMYCOSIS [None]
  - PHARYNGEAL ERYTHEMA [None]
  - VENTRICULAR EXTRASYSTOLES [None]
  - PULMONARY FUNCTION TEST ABNORMAL [None]
  - PAIN [None]
  - HEAD DISCOMFORT [None]
  - BLOOD ALBUMIN INCREASED [None]
  - FALL [None]
  - MITRAL VALVE INCOMPETENCE [None]
  - EXTRASYSTOLES [None]
  - LABYRINTHITIS [None]
  - SINUSITIS [None]
  - BACK PAIN [None]
  - LOWER RESPIRATORY TRACT INFECTION [None]
  - CHEST DISCOMFORT [None]
  - ABDOMINAL PAIN [None]
  - BLOOD UREA INCREASED [None]
  - CARDIAC MURMUR [None]
  - DEPRESSION [None]
  - BRONCHITIS [None]
  - ANHEDONIA [None]
  - CONDUCTION DISORDER [None]
  - HYPERTENSION [None]
  - JOINT CREPITATION [None]
  - DYSURIA [None]
  - RETINOPATHY [None]
  - ILL-DEFINED DISORDER [None]
  - GASTROENTERITIS [None]
  - ABDOMINAL PAIN LOWER [None]
  - BLOOD CREATININE INCREASED [None]
  - COLITIS [None]
  - ATRIOVENTRICULAR BLOCK SECOND DEGREE [None]
  - HYPOTHYROIDISM [None]
  - CATARACT [None]
  - CATARACT OPERATION [None]
  - NASAL CONGESTION [None]
  - OSTEOPENIA [None]
  - X-RAY ABNORMAL [None]
  - ECONOMIC PROBLEM [None]
  - ABASIA [None]
  - ARTHRALGIA [None]
  - FUNGAL INFECTION [None]
  - BLOOD GLUCOSE INCREASED [None]
  - FATIGUE [None]
  - HAEMATOCHEZIA [None]
  - WEIGHT DECREASED [None]
  - DRUG HYPERSENSITIVITY [None]
  - HYPERCHOLESTEROLAEMIA [None]
  - OSTEOARTHRITIS [None]
  - INTERVERTEBRAL DISC DEGENERATION [None]
  - CARDIOACTIVE DRUG LEVEL INCREASED [None]
  - DRUG ADMINISTRATION ERROR [None]
  - AMNESIA [None]
  - TREMOR [None]
  - COUGH [None]
  - BLOOD PRESSURE INCREASED [None]
  - LETHARGY [None]
  - BRONCHOPNEUMONIA [None]
  - ARTERIOSCLEROSIS [None]
  - ARTHRITIS [None]
  - EPISTAXIS [None]
  - MEMORY IMPAIRMENT [None]
  - MYALGIA [None]
  - PALPITATIONS [None]
  - SCIATICA [None]
  - TENDERNESS [None]
  - TENDONITIS [None]
  - VOMITING [None]
  - TOXICITY TO VARIOUS AGENTS [None]
  - TREATMENT NONCOMPLIANCE [None]
  - BURSA DISORDER [None]
  - SLEEP APNOEA SYNDROME [None]
  - NAUSEA [None]
  - EYELID PTOSIS [None]
  - SOMNOLENCE [None]
  - BRADYPHRENIA [None]
  - BRONCHOSPASM [None]
  - PNEUMONITIS CHEMICAL [None]
  - HYPOGLYCAEMIA [None]
  - BURSITIS [None]
  - HEADACHE [None]
  - OROPHARYNGEAL PAIN [None]
  - URINARY TRACT INFECTION [None]
  - DIARRHOEA [None]
  - PARAESTHESIA [None]
  - SINUS CONGESTION [None]
  - DIABETES MELLITUS INADEQUATE CONTROL [None]
  - DEMENTIA [None]
  - NOCTURIA [None]
  - BRADYCARDIA [None]
  - DYSPNOEA EXERTIONAL [None]
  - ABDOMINAL DISTENSION [None]
  - LABORATORY TEST ABNORMAL [None]
  - FAECAL INCONTINENCE [None]
  - MENTAL IMPAIRMENT [None]
  - PNEUMONIA [None]
  - CHONDROCALCINOSIS PYROPHOSPHATE [None]
